FAERS Safety Report 21018742 (Version 1)
Quarter: 2022Q2

REPORT INFORMATION
  Report Type: Spontaneous
  Country: JP (occurrence: JP)
  Receive Date: 20220628
  Receipt Date: 20220628
  Transmission Date: 20220721
  Serious: Yes (Life-Threatening, Other)
  Sender: FDA-Public Use
  Company Number: JP-ELI_LILLY_AND_COMPANY-JP202206012209

PATIENT
  Age: 75 Year
  Sex: Female
  Weight: 51 kg

DRUGS (33)
  1. TADALAFIL [Suspect]
     Active Substance: TADALAFIL
     Indication: Pulmonary arterial hypertension
     Dosage: 20 MG, UNKNOWN
     Route: 048
  2. UPTRAVI [Suspect]
     Active Substance: SELEXIPAG
     Indication: Pulmonary arterial hypertension
     Dosage: 0.2 MG, BID
     Route: 048
     Dates: start: 20170426, end: 20170510
  3. UPTRAVI [Suspect]
     Active Substance: SELEXIPAG
     Dosage: 0.4 MG, BID
     Route: 048
     Dates: start: 20170511, end: 20170607
  4. UPTRAVI [Suspect]
     Active Substance: SELEXIPAG
     Dosage: 0.6 MG, BID
     Route: 048
     Dates: start: 20170608, end: 20170620
  5. UPTRAVI [Suspect]
     Active Substance: SELEXIPAG
     Dosage: 0.8 MG, BID
     Route: 048
     Dates: start: 20170621, end: 20170704
  6. UPTRAVI [Suspect]
     Active Substance: SELEXIPAG
     Dosage: 1.0 MG, BID
     Route: 048
     Dates: start: 20170705, end: 20170718
  7. UPTRAVI [Suspect]
     Active Substance: SELEXIPAG
     Dosage: 0.6 MG, BID
     Route: 048
     Dates: start: 20170719, end: 20170801
  8. UPTRAVI [Suspect]
     Active Substance: SELEXIPAG
     Dosage: 0.8 MG, BID
     Route: 065
     Dates: start: 20170802
  9. CELLCEPT [Suspect]
     Active Substance: MYCOPHENOLATE MOFETIL
     Indication: Microscopic polyangiitis
     Dosage: 250 MG, DAILY
     Route: 048
     Dates: start: 20170511, end: 20170607
  10. CELLCEPT [Suspect]
     Active Substance: MYCOPHENOLATE MOFETIL
     Dosage: 500 MG, DAILY
     Route: 048
     Dates: start: 20170608
  11. CELLCEPT [Suspect]
     Active Substance: MYCOPHENOLATE MOFETIL
     Dosage: 250 MG, DAILY
     Route: 048
  12. MIZORIBINE [Suspect]
     Active Substance: MIZORIBINE
     Indication: Microscopic polyangiitis
     Dosage: 150 MG, DAILY
     Route: 048
  13. GASLON [Concomitant]
     Active Substance: IRSOGLADINE MALEATE
     Indication: Chronic gastritis
     Dosage: 4 MG, DAILY
     Route: 065
  14. PREDONINE [Concomitant]
     Active Substance: PREDNISOLONE
     Indication: Microscopic polyangiitis
     Dosage: 5 MG, DAILY
     Route: 065
  15. PROGRAF [Concomitant]
     Active Substance: TACROLIMUS
     Indication: Microscopic polyangiitis
     Dosage: 6 MG, DAILY
     Route: 065
  16. AMBRISENTAN [Concomitant]
     Active Substance: AMBRISENTAN
     Indication: Pulmonary arterial hypertension
     Dosage: 10 MG, DAILY
     Route: 065
  17. LANSOPRAZOLE [Concomitant]
     Active Substance: LANSOPRAZOLE
     Indication: Gastrooesophageal reflux disease
     Dosage: 15 MG, DAILY
     Route: 065
     Dates: end: 20180314
  18. VILDAGLIPTIN [Concomitant]
     Active Substance: VILDAGLIPTIN
     Indication: Diabetes mellitus
     Dosage: 100 MG, DAILY
     Route: 065
  19. CLONAZEPAM [Concomitant]
     Active Substance: CLONAZEPAM
     Indication: Microscopic polyangiitis
     Dosage: 1.5 MG, DAILY
     Route: 065
  20. CYMBALTA [Concomitant]
     Active Substance: DULOXETINE HYDROCHLORIDE
     Indication: Microscopic polyangiitis
     Dosage: 20 MG, DAILY
     Route: 065
  21. CELECOXIB [Concomitant]
     Active Substance: CELECOXIB
     Indication: Microscopic polyangiitis
     Dosage: 200 MG, DAILY
     Route: 065
  22. SULFAMETHOXAZOLE\TRIMETHOPRIM [Concomitant]
     Active Substance: SULFAMETHOXAZOLE\TRIMETHOPRIM
     Indication: Prophylaxis
     Dosage: UNK, UNKNOWN
     Route: 065
  23. ALENDRONATE SODIUM [Concomitant]
     Active Substance: ALENDRONATE SODIUM
     Indication: Prophylaxis
     Dosage: UNK, UNKNOWN
     Route: 065
  24. URSO [Concomitant]
     Active Substance: URSODIOL
     Indication: Hepatic enzyme increased
     Dosage: 300 MG, DAILY
     Route: 065
     Dates: start: 20170607
  25. RABEPRAZOLE SODIUM [Concomitant]
     Active Substance: RABEPRAZOLE SODIUM
     Indication: Gastrooesophageal reflux disease
     Dosage: 10 MG, DAILY
     Route: 065
     Dates: start: 20180314
  26. ROZEREM [Concomitant]
     Active Substance: RAMELTEON
     Indication: Insomnia
     Dosage: 8 MG, DAILY
     Route: 065
     Dates: start: 20180214
  27. FEBUXOSTAT [Concomitant]
     Active Substance: FEBUXOSTAT
     Indication: Hyperuricaemia
     Dosage: 10 MG, DAILY
     Route: 065
     Dates: start: 20180530, end: 20180711
  28. POLAPREZINC [Concomitant]
     Active Substance: POLAPREZINC
     Indication: Anaemia
     Dosage: 150 MG, DAILY
     Route: 065
     Dates: start: 20190606
  29. VITAMEDIN [BENFOTIAMINE;CYANOCOBALAMIN;PYRIDO [Concomitant]
     Indication: Anaemia
     Dosage: 2 DOSAGE FORM, DAILY
     Route: 065
     Dates: start: 20190606
  30. FOLIC ACID [Concomitant]
     Active Substance: FOLIC ACID
     Indication: Anaemia
     Dosage: 5 MG, DAILY
     Route: 065
     Dates: start: 20190606, end: 20190717
  31. FLAVIN ADENINE DINUCLEOTIDE [Concomitant]
     Active Substance: FLAVIN ADENINE DINUCLEOTIDE
     Indication: Anaemia
     Dosage: 5 MG, DAILY
     Route: 065
     Dates: start: 20190606
  32. SPIRONOLACTONE [Concomitant]
     Active Substance: SPIRONOLACTONE
     Indication: Hepatic cirrhosis
     Dosage: 50 MG, DAILY
     Route: 065
     Dates: start: 20190606
  33. SAMSCA [Concomitant]
     Active Substance: TOLVAPTAN
     Indication: Hepatic cirrhosis
     Dosage: 7.5 MG, DAILY
     Route: 065
     Dates: start: 20190729

REACTIONS (2)
  - Hepatic cirrhosis [Not Recovered/Not Resolved]
  - Anaemia [Not Recovered/Not Resolved]

NARRATIVE: CASE EVENT DATE: 20190523
